FAERS Safety Report 22322298 (Version 2)
Quarter: 2023Q2

REPORT INFORMATION
  Report Type: Spontaneous
  Country: TH (occurrence: TH)
  Receive Date: 20230516
  Receipt Date: 20230517
  Transmission Date: 20230721
  Serious: Yes (Other)
  Sender: FDA-Public Use
  Company Number: TH-002147023-NVSC2023TH107563

PATIENT
  Age: 52 Year
  Sex: Female

DRUGS (3)
  1. RIBOCICLIB [Suspect]
     Active Substance: RIBOCICLIB
     Indication: Hormone receptor positive HER2 negative breast cancer
     Dosage: UNK ((200) 3X1 (2W)
     Route: 065
     Dates: start: 20220228, end: 20220314
  2. RIBOCICLIB [Suspect]
     Active Substance: RIBOCICLIB
     Dosage: UNK (200) 2X1)
     Route: 065
     Dates: start: 20220328, end: 20220607
  3. FEMARA [Suspect]
     Active Substance: LETROZOLE
     Indication: Hormone receptor positive HER2 negative breast cancer
     Dosage: UNK (2.5) (1X1)
     Route: 065

REACTIONS (6)
  - Metastases to lymph nodes [Unknown]
  - Malignant neoplasm progression [Unknown]
  - Breast cancer [Unknown]
  - Electrocardiogram QT prolonged [Unknown]
  - Vocal cord paralysis [Unknown]
  - Hepatic lesion [Unknown]
